FAERS Safety Report 17572266 (Version 1)
Quarter: 2020Q1

REPORT INFORMATION
  Report Type: Spontaneous
  Country: US (occurrence: US)
  Receive Date: 20200317
  Receipt Date: 20200317
  Transmission Date: 20200409
  Serious: No
  Sender: FDA-Public Use
  Company Number: None

PATIENT
  Age: 68 Year
  Sex: Female
  Weight: 61.24 kg

DRUGS (5)
  1. NATURE MADE HAIR, SKIN + NAILS [Concomitant]
  2. SPRING VALLEY VITAMIN D3 [Concomitant]
  3. METOPROLOL SUCCINATE ER [Suspect]
     Active Substance: METOPROLOL SUCCINATE
     Indication: ATRIAL FIBRILLATION
     Dosage: ?          QUANTITY:3 PILL PER DAY 1 M;OTHER FREQUENCY:1 EACH MORNING 2 I;?
     Route: 048
     Dates: start: 20200113, end: 20200311
  4. LEVOTHYROXINE. [Concomitant]
     Active Substance: LEVOTHYROXINE
  5. ELIQUIS [Concomitant]
     Active Substance: APIXABAN

REACTIONS (4)
  - Feeling abnormal [None]
  - Heart rate increased [None]
  - Alopecia [None]
  - Hair texture abnormal [None]
